FAERS Safety Report 7657573-5 (Version None)
Quarter: 2011Q3

REPORT INFORMATION
  Report Type: 
  Country: None (occurrence: None)
  Receive Date: 20110804
  Receipt Date: 20110727
  Transmission Date: 20111222
  Serious: Yes (Other)
  Sender: FDA-Public Use
  Company Number: AU-B.I. PHARMACEUTICALS,INC./RIDGEFIELD-2011-BP-19046YA

PATIENT
  Sex: Male
  Weight: 83 kg

DRUGS (6)
  1. LEVOTHYROXINE SODIUM [Concomitant]
  2. TRANDOLAPRIL [Concomitant]
  3. COPLAVIX [Concomitant]
  4. METOPROLOL SUCCINATE [Concomitant]
  5. TAMSULOSIN HCL [Suspect]
     Dates: start: 20110223, end: 20110309
  6. LANTUS [Concomitant]

REACTIONS (2)
  - DIARRHOEA [None]
  - HAEMORRHOIDAL HAEMORRHAGE [None]
